FAERS Safety Report 24711923 (Version 1)
Quarter: 2024Q4

REPORT INFORMATION
  Report Type: Spontaneous
  Country: AU (occurrence: AU)
  Receive Date: 20241209
  Receipt Date: 20241209
  Transmission Date: 20250115
  Serious: Yes (Hospitalization, Other)
  Sender: SANOFI AVENTIS
  Company Number: AU-DialogSolutions-SAAVPROD-PI702957-C1

PATIENT
  Age: 27 Year
  Sex: Male

DRUGS (2)
  1. DUPILUMAB [Suspect]
     Active Substance: DUPILUMAB
     Indication: Dermatitis atopic
     Dosage: 300 MG, QOW
     Route: 058
  2. DESVENLAFAXINE [Concomitant]
     Active Substance: DESVENLAFAXINE
     Indication: Depression

REACTIONS (17)
  - Papilloma conjunctival [Recovering/Resolving]
  - Eye pain [Recovering/Resolving]
  - Papilloma viral infection [Recovering/Resolving]
  - Parakeratosis [Recovering/Resolving]
  - Conjunctivitis [Recovering/Resolving]
  - Dry eye [Recovering/Resolving]
  - Vision blurred [Recovering/Resolving]
  - Nodule [Recovering/Resolving]
  - Corneal perforation [Recovering/Resolving]
  - Ulcerative keratitis [Recovering/Resolving]
  - Visual impairment [Recovering/Resolving]
  - Corneal opacity [Recovering/Resolving]
  - Neovascularisation [Recovering/Resolving]
  - Cataract [Recovering/Resolving]
  - Iris adhesions [Recovering/Resolving]
  - Scar [Recovering/Resolving]
  - Blindness [Recovering/Resolving]
